FAERS Safety Report 5886314-7 (Version None)
Quarter: 2008Q3

REPORT INFORMATION
  Report Type: 
  Country: None (occurrence: None)
  Receive Date: 20080917
  Receipt Date: 20080909
  Transmission Date: 20090109
  Serious: Yes (Other)
  Sender: FDA-Public Use
  Company Number: A0747613A

PATIENT
  Age: 60 Year
  Sex: Male

DRUGS (1)
  1. BUPROPION HCL [Suspect]

REACTIONS (1)
  - CEREBROVASCULAR ACCIDENT [None]
